FAERS Safety Report 8578487-2 (Version None)
Quarter: 2012Q3

REPORT INFORMATION
  Report Type: 
  Country: None (occurrence: None)
  Receive Date: 20120808
  Receipt Date: 20120731
  Transmission Date: 20120928
  Serious: Yes (Hospitalization)
  Sender: FDA-Public Use
  Company Number: US-US-EMD SERONO, INC.-7032413

PATIENT
  Sex: Male

DRUGS (5)
  1. UNSPECIFIED MEDICATION [Concomitant]
     Indication: PREMEDICATION
  2. GABAPENTIN [Concomitant]
     Indication: PAIN IN EXTREMITY
     Dates: start: 20110101
  3. REBIF [Suspect]
     Indication: MULTIPLE SCLEROSIS
     Route: 058
     Dates: start: 20101014
  4. PREDNISONE TAB [Suspect]
     Indication: CONDITION AGGRAVATED
     Route: 048
     Dates: start: 20100101
  5. SOLU-MEDROL [Suspect]
     Indication: DISEASE PROGRESSION
     Dates: start: 20101001, end: 20110101

REACTIONS (4)
  - ACUTE MYOCARDIAL INFARCTION [None]
  - CONDITION AGGRAVATED [None]
  - INJECTION SITE ERYTHEMA [None]
  - ATRIAL FIBRILLATION [None]
